FAERS Safety Report 18868208 (Version 1)
Quarter: 2021Q1

REPORT INFORMATION
  Report Type: Spontaneous
  Country: CN (occurrence: CN)
  Receive Date: 20210209
  Receipt Date: 20210209
  Transmission Date: 20210420
  Serious: Yes (Other)
  Sender: FDA-Public Use
  Company Number: CN-009507513-2102CHN002631

PATIENT
  Age: 68 Year
  Sex: Male

DRUGS (1)
  1. KEYTRUDA [Suspect]
     Active Substance: PEMBROLIZUMAB
     Indication: LUNG NEOPLASM MALIGNANT
     Dosage: THE SECOND CYCLE ON DAY 1 (FREQUENCY ALSO REPORTED AS ONCE A DAY)
     Route: 041
     Dates: start: 20210109, end: 20210109

REACTIONS (5)
  - Loss of consciousness [Recovered/Resolved]
  - Hyperhidrosis [Recovering/Resolving]
  - Drug hypersensitivity [Recovering/Resolving]
  - Abdominal pain [Recovering/Resolving]
  - Sinus tachycardia [Recovered/Resolved]

NARRATIVE: CASE EVENT DATE: 20210109
